FAERS Safety Report 18075724 (Version 1)
Quarter: 2020Q3

REPORT INFORMATION
  Report Type: Spontaneous
  Country: US (occurrence: US)
  Receive Date: 20200727
  Receipt Date: 20200727
  Transmission Date: 20201103
  Serious: No
  Sender: FDA-Public Use
  Company Number: US-ABBVIE-20K-163-3360467-00

PATIENT
  Sex: Female

DRUGS (1)
  1. LEVOTHYROXINE. [Suspect]
     Active Substance: LEVOTHYROXINE
     Indication: PRODUCT USED FOR UNKNOWN INDICATION
     Dosage: VARIOUS DIFFERENT STRENGTHS OVER UNKNOWN PERIOD OF TIME
     Route: 048
     Dates: start: 2000

REACTIONS (2)
  - Laboratory test abnormal [Recovered/Resolved]
  - Malaise [Recovered/Resolved]
